FAERS Safety Report 8759955 (Version 3)
Quarter: 2012Q4

REPORT INFORMATION
  Report Type: 
  Country: JP (occurrence: JP)
  Receive Date: 20120829
  Receipt Date: 20120918
  Transmission Date: 20130627
  Serious: Yes (Other)
  Sender: FDA-Public Use
  Company Number: JP-GLAXOSMITHKLINE-B0824344A

PATIENT
  Sex: Female

DRUGS (9)
  1. LAMICTAL [Suspect]
     Indication: MOOD ALTERED
     Dosage: 25MG Per day
     Route: 048
     Dates: start: 20111110, end: 20111123
  2. LAMICTAL [Suspect]
     Indication: MOOD ALTERED
     Dosage: 25MG Per day
     Route: 048
     Dates: start: 20111124, end: 20111207
  3. LAMICTAL [Suspect]
     Indication: MOOD ALTERED
     Dosage: 25MG Twice per day
     Route: 048
     Dates: start: 20111208, end: 20111228
  4. LAMICTAL [Suspect]
     Indication: MOOD ALTERED
     Dosage: 50MG Twice per day
     Route: 048
     Dates: start: 20111229, end: 20120111
  5. LAMICTAL [Suspect]
     Indication: MOOD ALTERED
     Dosage: 100MG Twice per day
     Route: 048
     Dates: start: 20120112, end: 20120222
  6. LAMICTAL [Suspect]
     Indication: MOOD ALTERED
     Dosage: 150MG Twice per day
     Route: 048
     Dates: start: 20120223, end: 20120816
  7. LIMAS [Concomitant]
     Indication: MOOD ALTERED
     Dosage: 200MG Twice per day
     Route: 048
     Dates: start: 201102
  8. GOODMIN [Concomitant]
     Indication: INSOMNIA
     Dosage: .25MG Per day
     Route: 048
     Dates: start: 201012
  9. HIRNAMIN [Concomitant]
     Indication: INSOMNIA
     Dosage: 20MG Per day
     Route: 048
     Dates: start: 201101

REACTIONS (6)
  - Rash generalised [Unknown]
  - Dermatitis [Recovering/Resolving]
  - Rash [Recovering/Resolving]
  - Diplopia [Recovered/Resolved]
  - Oscillopsia [Recovered/Resolved]
  - Photopsia [Recovered/Resolved]
